FAERS Safety Report 19979108 (Version 2)
Quarter: 2021Q4

REPORT INFORMATION
  Report Type: Spontaneous
  Country: UA (occurrence: UA)
  Receive Date: 20211021
  Receipt Date: 20211122
  Transmission Date: 20220303
  Serious: Yes (Other)
  Sender: FDA-Public Use
  Company Number: UA-NOVARTISPH-NVSC2021UA238356

PATIENT
  Sex: Female
  Weight: 70 kg

DRUGS (1)
  1. BROLUCIZUMAB [Suspect]
     Active Substance: BROLUCIZUMAB
     Indication: Maculopathy
     Dosage: 6MG - 0.05 ML
     Route: 031
     Dates: start: 20210813, end: 20211013

REACTIONS (4)
  - Retinal vasculitis [Recovering/Resolving]
  - Visual impairment [Unknown]
  - Vitreous opacities [Unknown]
  - Uveitis [Recovering/Resolving]
